FAERS Safety Report 13070140 (Version 1)
Quarter: 2016Q4

REPORT INFORMATION
  Report Type: Not Available
  Country: US (occurrence: US)
  Receive Date: 20161228
  Receipt Date: 20161228
  Transmission Date: 20170207
  Serious: No
  Sender: FDA-Public Use
  Company Number: US-ANIPHARMA-2016-US-007296

PATIENT
  Sex: Female

DRUGS (4)
  1. SYNTHROID [Concomitant]
     Active Substance: LEVOTHYROXINE SODIUM
     Dosage: 112MCG
     Route: 048
     Dates: start: 2013
  2. OXCARBAZEPINE (NON-SPECIFIC) [Suspect]
     Active Substance: OXCARBAZEPINE
     Dosage: 1200 MG TWICE DAILY
     Route: 048
     Dates: start: 201409, end: 201503
  3. VITAMINS UNSPECIFIED [Concomitant]
     Active Substance: VITAMINS
     Route: 048
  4. INDOMETHACIN. [Concomitant]
     Active Substance: INDOMETHACIN
     Dosage: 25 MG
     Route: 048
     Dates: start: 2014

REACTIONS (1)
  - Dizziness [Recovered/Resolved]
